FAERS Safety Report 25396819 (Version 1)
Quarter: 2025Q2

REPORT INFORMATION
  Report Type: Spontaneous
  Country: CR (occurrence: CR)
  Receive Date: 20250604
  Receipt Date: 20250604
  Transmission Date: 20250716
  Serious: Yes (Hospitalization, Other)
  Sender: SANDOZ
  Company Number: CR-002147023-NVSC2023CR105878

PATIENT
  Age: 57 Year
  Sex: Female

DRUGS (2)
  1. FULVESTRANT [Suspect]
     Active Substance: FULVESTRANT
     Indication: Product used for unknown indication
     Route: 065
  2. KISQALI [Suspect]
     Active Substance: RIBOCICLIB SUCCINATE
     Indication: Breast cancer
     Route: 065

REACTIONS (23)
  - Disease complication [Unknown]
  - Gait disturbance [Unknown]
  - Weight decreased [Unknown]
  - Pleural effusion [Unknown]
  - Dyspnoea [Unknown]
  - Decreased appetite [Unknown]
  - Spinal cord injury [Unknown]
  - Metastases to bone [Unknown]
  - Metastases to spine [Unknown]
  - Metastases to breast [Unknown]
  - Syncope [Unknown]
  - Breast cancer [Unknown]
  - Mammogram abnormal [Unknown]
  - Increased appetite [Unknown]
  - Aphonia [Recovering/Resolving]
  - Depressed mood [Unknown]
  - Rhinorrhoea [Recovering/Resolving]
  - Influenza [Recovering/Resolving]
  - Cough [Recovering/Resolving]
  - Vomiting [Unknown]
  - Fatigue [Unknown]
  - Nausea [Unknown]
  - Asthenia [Unknown]

NARRATIVE: CASE EVENT DATE: 20230201
